FAERS Safety Report 5775242-3 (Version None)
Quarter: 2008Q2

REPORT INFORMATION
  Report Type: 
  Country: None (occurrence: None)
  Receive Date: 20080617
  Receipt Date: 20080616
  Transmission Date: 20081010
  Serious: Yes (Hospitalization, Other)
  Sender: FDA-Public Use
  Company Number: US-BAYER-US-2007-027772

PATIENT
  Age: 45 Year
  Sex: Female
  Weight: 59 kg

DRUGS (5)
  1. BETASERON [Suspect]
     Indication: RELAPSING-REMITTING MULTIPLE SCLEROSIS
     Dosage: TOTAL DAILY DOSE: 8 MIU
     Route: 058
     Dates: start: 19940421, end: 20070824
  2. BACLOFEN [Concomitant]
     Indication: MUSCLE SPASMS
     Dosage: AS USED: 10 MG
  3. PROVIGIL [Concomitant]
     Indication: FATIGUE
     Dosage: AS USED: 100 MG
     Dates: start: 20060101
  4. OXYTROL [Concomitant]
     Indication: URINARY INCONTINENCE
     Dates: start: 20070901
  5. ASCORBIC ACID [Concomitant]
     Indication: BLADDER DISORDER
     Dates: start: 20070901

REACTIONS (8)
  - GAIT DISTURBANCE [None]
  - HERPES ZOSTER [None]
  - INJECTION SITE CELLULITIS [None]
  - INJECTION SITE ERYTHEMA [None]
  - INJECTION SITE INFECTION [None]
  - INJECTION SITE MASS [None]
  - INJECTION SITE PAIN [None]
  - MULTIPLE SCLEROSIS [None]
